FAERS Safety Report 8346894 (Version 2)
Quarter: 2013Q1

REPORT INFORMATION
  Report Type: Report from Study
  Country: DE (occurrence: DE)
  Receive Date: 20120120
  Receipt Date: 20130219
  Transmission Date: 20140127
  Serious: Yes (Hospitalization)
  Sender: FDA-Public Use
  Company Number: PHHO2012DE001237

PATIENT
  Age: 66 Year
  Sex: Female
  Weight: 49.7 kg

DRUGS (2)
  1. MYCOPHENOLIC ACID [Suspect]
     Indication: RENAL TRANSPLANT
     Dosage: 360 MG, BID
     Route: 048
     Dates: start: 20100204, end: 20120110
  2. ADVAGRAF [Concomitant]
     Indication: RENAL TRANSPLANT
     Dosage: 1.5 MG, DAILY
     Route: 048
     Dates: start: 20100217

REACTIONS (2)
  - Renal failure [Recovering/Resolving]
  - Polyomavirus-associated nephropathy [Not Recovered/Not Resolved]
